FAERS Safety Report 24139198 (Version 1)
Quarter: 2024Q3

REPORT INFORMATION
  Report Type: Report from Study
  Country: US (occurrence: None)
  Receive Date: 20240726
  Receipt Date: 20240726
  Transmission Date: 20241017
  Serious: Yes (Hospitalization)
  Sender: ASTRAZENECA
  Company Number: 2023A239685

PATIENT
  Sex: Female

DRUGS (1)
  1. LYNPARZA [Suspect]
     Active Substance: OLAPARIB
     Indication: Breast cancer female
     Route: 048
     Dates: start: 20230728

REACTIONS (6)
  - Muscle spasms [Unknown]
  - Renal function test abnormal [Unknown]
  - Nausea [Unknown]
  - Haemoglobin decreased [Unknown]
  - Peripheral swelling [Recovered/Resolved]
  - Underdose [Unknown]
